FAERS Safety Report 7212913-6 (Version None)
Quarter: 2011Q1

REPORT INFORMATION
  Report Type: 
  Country: None (occurrence: None)
  Receive Date: 20110106
  Receipt Date: 20101230
  Transmission Date: 20110831
  Serious: Yes (Hospitalization)
  Sender: FDA-Public Use
  Company Number: US-US-EMD SERONO, INC.-7024879

PATIENT
  Sex: Female
  Weight: 100 kg

DRUGS (6)
  1. GABAPENTIN [Concomitant]
     Indication: NEURALGIA
  2. PRILOSEC [Concomitant]
     Indication: GASTROOESOPHAGEAL REFLUX DISEASE
  3. REBIF [Suspect]
     Indication: MULTIPLE SCLEROSIS
     Route: 058
     Dates: start: 20071201, end: 20101026
  4. NORVASC [Concomitant]
     Indication: HYPERTENSION
  5. REBIF [Suspect]
     Route: 058
     Dates: start: 20100101
  6. SYNTHROID [Concomitant]
     Indication: HYPOTHYROIDISM

REACTIONS (3)
  - NASOPHARYNGITIS [None]
  - OROPHARYNGEAL PAIN [None]
  - INFLUENZA LIKE ILLNESS [None]
